FAERS Safety Report 14808558 (Version 1)
Quarter: 2018Q2

REPORT INFORMATION
  Report Type: Spontaneous
  Country: DK (occurrence: DK)
  Receive Date: 20180425
  Receipt Date: 20180425
  Transmission Date: 20180711
  Serious: Yes (Life-Threatening, Hospitalization)
  Sender: FDA-Public Use
  Company Number: DK-TEVA-2018-DK-885064

PATIENT
  Age: 56 Year
  Sex: Male
  Weight: 109 kg

DRUGS (4)
  1. AMLODIPIN ^ACTAVIS^ [Concomitant]
     Active Substance: AMLODIPINE BESYLATE
     Indication: HYPERTENSION
     Dosage: 5 MILLIGRAM DAILY;
     Route: 048
     Dates: start: 20171213
  2. COLECALCIFEROL [Concomitant]
     Active Substance: CHOLECALCIFEROL
     Indication: VITAMIN SUPPLEMENTATION
     Dosage: 35 MICROGRAM DAILY;
     Route: 048
     Dates: start: 20171218
  3. ATORVASTATIN TEVA [Suspect]
     Active Substance: ATORVASTATIN
     Indication: HYPERCHOLESTEROLAEMIA
     Route: 048
     Dates: start: 20171218, end: 20180202
  4. RAMIPRIL ^ACTAVIS^ [Concomitant]
     Active Substance: RAMIPRIL
     Indication: HYPERTENSION
     Dosage: 5 MILLIGRAM DAILY;
     Route: 048
     Dates: start: 20180108

REACTIONS (11)
  - Vitamin B12 increased [Unknown]
  - Blood triglycerides increased [Unknown]
  - Chromaturia [Unknown]
  - Serum ferritin increased [Unknown]
  - Vomiting [Unknown]
  - Hepatic function abnormal [Unknown]
  - Malaise [Unknown]
  - Diarrhoea [Unknown]
  - Dizziness [Unknown]
  - Dyspnoea [Unknown]
  - Blood pressure increased [Unknown]

NARRATIVE: CASE EVENT DATE: 201801
